APPROVED DRUG PRODUCT: BETA-VAL
Active Ingredient: BETAMETHASONE VALERATE
Strength: EQ 0.1% BASE
Dosage Form/Route: LOTION;TOPICAL
Application: A070072 | Product #001
Applicant: COSETTE PHARMACEUTICALS INC
Approved: Jun 27, 1985 | RLD: No | RS: No | Type: DISCN